FAERS Safety Report 4649734-4 (Version None)
Quarter: 2005Q2

REPORT INFORMATION
  Report Type: 
  Country: None (occurrence: None)
  Receive Date: 20050428
  Receipt Date: 20050428
  Transmission Date: 20051028
  Serious: Yes (Life-Threatening, Disabling)
  Sender: FDA-Public Use
  Company Number: None

PATIENT
  Sex: Male
  Weight: 86.1834 kg

DRUGS (6)
  1. LARIAM [Suspect]
     Indication: MALARIA PROPHYLAXIS
     Dosage: 1 PILL  WEEKLY ORAL
     Route: 048
     Dates: start: 20000226, end: 20000422
  2. BENZODIAZAPINES [Concomitant]
  3. SLEEPING PILLS [Concomitant]
  4. PAXIL [Concomitant]
  5. DEPAKOTE [Concomitant]
  6. NAMENDA [Concomitant]

REACTIONS (4)
  - COGNITIVE DISORDER [None]
  - DRUG TOXICITY [None]
  - NERVOUS SYSTEM DISORDER [None]
  - VESTIBULAR DISORDER [None]
